FAERS Safety Report 10925380 (Version 1)
Quarter: 2015Q1

REPORT INFORMATION
  Report Type: Spontaneous
  Country: MX (occurrence: MX)
  Receive Date: 20150318
  Receipt Date: 20150318
  Transmission Date: 20150721
  Serious: Yes (Hospitalization)
  Sender: FDA-Public Use
  Company Number: MX-RANBAXY-2013R1-73637

PATIENT
  Age: 66 Year
  Sex: Female

DRUGS (2)
  1. CAPTOPRIL. [Suspect]
     Active Substance: CAPTOPRIL
     Indication: ESSENTIAL HYPERTENSION
     Dosage: 25 MG, TID
     Route: 065
  2. RAMIPRIL/HYDROCHLOROTHIAZIDE [Suspect]
     Active Substance: HYDROCHLOROTHIAZIDE\RAMIPRIL
     Indication: HYPERTENSION
     Dosage: UNK
     Route: 065

REACTIONS (1)
  - Hypoglycaemia [Recovered/Resolved]
